FAERS Safety Report 16835019 (Version 1)
Quarter: 2019Q3

REPORT INFORMATION
  Report Type: Spontaneous
  Country: US (occurrence: US)
  Receive Date: 20190920
  Receipt Date: 20190920
  Transmission Date: 20191005
  Serious: Yes (Other)
  Sender: FDA-Public Use
  Company Number: US-SA-2017SA245376

PATIENT
  Age: 57 Year
  Sex: Female

DRUGS (22)
  1. MORPHINE [Concomitant]
     Active Substance: MORPHINE
     Dosage: 4 MG,PRN
     Route: 042
  2. CARBOPLATIN. [Concomitant]
     Active Substance: CARBOPLATIN
     Dosage: UNK
     Dates: start: 20091210, end: 20091210
  3. CALTRATE 600+D [Concomitant]
     Dosage: 3 DF,QD
     Route: 065
  4. LISINOPRIL. [Concomitant]
     Active Substance: LISINOPRIL
     Dosage: 20 MG,QD
     Route: 065
     Dates: start: 2009, end: 2009
  5. HERCEPTIN [Concomitant]
     Active Substance: TRASTUZUMAB
     Indication: BREAST CANCER FEMALE
     Dosage: UNK
     Route: 065
     Dates: start: 20091210, end: 20091210
  6. MICARDIS [Concomitant]
     Active Substance: TELMISARTAN
     Dosage: 80 MG,QD
     Route: 065
  7. PARAPLATIN [Concomitant]
     Active Substance: CARBOPLATIN
     Indication: BREAST CANCER FEMALE
     Dosage: UNK UNK,Q3W
     Route: 065
     Dates: start: 20090819, end: 20090819
  8. ASA [Concomitant]
     Active Substance: ASPIRIN
     Dosage: 81 MG,QD
     Route: 065
  9. CARBOPLATIN. [Concomitant]
     Active Substance: CARBOPLATIN
     Indication: BREAST CANCER FEMALE
     Dosage: UNK
     Dates: start: 20090819, end: 20090819
  10. TAXOTERE [Suspect]
     Active Substance: DOCETAXEL
     Indication: BREAST CANCER FEMALE
     Dosage: 122 MG,Q3W
     Route: 042
     Dates: start: 20090819, end: 20090819
  11. PARAPLATIN [Concomitant]
     Active Substance: CARBOPLATIN
     Dosage: UNK UNK,Q3W
     Route: 065
     Dates: start: 20091210, end: 20091210
  12. CALCIUM [Concomitant]
     Active Substance: CALCIUM
     Dosage: 1 DF,TID
     Route: 065
  13. ACETYLSALICYLIC ACID [Concomitant]
     Active Substance: ASPIRIN
     Dosage: 81 MG,QD
     Route: 065
  14. TAXOTERE [Suspect]
     Active Substance: DOCETAXEL
     Dosage: 122 MG,Q3W
     Route: 042
     Dates: start: 20091210, end: 20091210
  15. LOVASTATIN. [Concomitant]
     Active Substance: LOVASTATIN
     Dosage: 20 MG,HS
     Route: 065
     Dates: start: 2009
  16. ZOFRAN [Concomitant]
     Active Substance: ONDANSETRON HYDROCHLORIDE
     Dosage: 4 MG,PRN
     Route: 042
  17. ASPIRIN [ACETYLSALICYLIC ACID] [Concomitant]
     Active Substance: ASPIRIN
     Dosage: UNK
     Dates: start: 2006
  18. CLOBETASOL [Concomitant]
     Active Substance: CLOBETASOL
     Dosage: UNK UNK,BID
     Route: 065
  19. ATENOLOL. [Concomitant]
     Active Substance: ATENOLOL
     Dosage: 50 MG,QD
     Route: 065
     Dates: start: 1996, end: 2009
  20. HERCEPTIN [Concomitant]
     Active Substance: TRASTUZUMAB
     Dosage: UNK
     Route: 065
     Dates: start: 20090819, end: 20090819
  21. CALTRATE 600+D [Concomitant]
     Dosage: UNK
     Dates: start: 2006
  22. ERGOCALCIFEROL. [Concomitant]
     Active Substance: ERGOCALCIFEROL
     Dosage: 1 DF,QD
     Route: 065

REACTIONS (2)
  - Psychological trauma [Unknown]
  - Alopecia [Recovering/Resolving]

NARRATIVE: CASE EVENT DATE: 200908
